FAERS Safety Report 5704355-7 (Version None)
Quarter: 2008Q2

REPORT INFORMATION
  Report Type: 
  Country: None (occurrence: None)
  Receive Date: 20080414
  Receipt Date: 20061214
  Transmission Date: 20081010
  Serious: Yes (Hospitalization, Other)
  Sender: FDA-Public Use
  Company Number: US-BRISTOL-MYERS SQUIBB COMPANY-13269311

PATIENT
  Age: 66 Year
  Sex: Male

DRUGS (6)
  1. CETUXIMAB [Suspect]
     Indication: NON-SMALL CELL LUNG CANCER STAGE IV
     Dosage: THERAPY INITIATED 09-DEC-2006. (DOSE 4302).
     Route: 042
     Dates: start: 20060127, end: 20060127
  2. CARBOPLATIN [Suspect]
     Indication: NON-SMALL CELL LUNG CANCER STAGE IV
     Dosage: THERAPY INITIATED 09-DEC-2006. (DOSE 1792 MG)
     Route: 042
     Dates: start: 20060120, end: 20060120
  3. DOCETAXEL [Suspect]
     Indication: NON-SMALL CELL LUNG CANCER STAGE IV
     Dosage: THERAPY INITIATED 09-DEC-2006(DOSE 371 MG).
     Route: 042
     Dates: start: 20060120, end: 20060120
  4. NEULASTA [Concomitant]
     Dates: start: 20051231
  5. COMPAZINE [Concomitant]
     Dates: start: 20051209
  6. VICODIN [Concomitant]
     Dates: start: 20051216

REACTIONS (2)
  - ARTHRITIS INFECTIVE [None]
  - NEUTROPENIA [None]
